FAERS Safety Report 13443011 (Version 1)
Quarter: 2017Q2

REPORT INFORMATION
  Report Type: Spontaneous
  Country: US (occurrence: US)
  Receive Date: 20170414
  Receipt Date: 20170414
  Transmission Date: 20170830
  Serious: No
  Sender: FDA-Public Use
  Company Number: US-AMGEN-USASP2017051632

PATIENT
  Age: 56 Year
  Sex: Female

DRUGS (14)
  1. ATENOLOL. [Concomitant]
     Active Substance: ATENOLOL
  2. TRAMADOL. [Concomitant]
     Active Substance: TRAMADOL
  3. METHOTREXATE. [Concomitant]
     Active Substance: METHOTREXATE
  4. CELECOXIB. [Concomitant]
     Active Substance: CELECOXIB
  5. ESCITALOPRAM [Concomitant]
     Active Substance: ESCITALOPRAM OXALATE
  6. LOVASTATIN. [Concomitant]
     Active Substance: LOVASTATIN
  7. OMEPRAZOLE. [Concomitant]
     Active Substance: OMEPRAZOLE
  8. CLONAZEPAM. [Concomitant]
     Active Substance: CLONAZEPAM
  9. PREDNISONE. [Concomitant]
     Active Substance: PREDNISONE
  10. MONTELUKAST [Concomitant]
     Active Substance: MONTELUKAST SODIUM
  11. ENBREL [Suspect]
     Active Substance: ETANERCEPT
     Indication: RHEUMATOID ARTHRITIS
     Dosage: 50 MG, QWK
     Route: 058
     Dates: start: 201703
  12. FOLIC ACID. [Concomitant]
     Active Substance: FOLIC ACID
  13. VITAMIN D2 [Concomitant]
     Active Substance: ERGOCALCIFEROL
  14. METFORMIN [Concomitant]
     Active Substance: METFORMIN HYDROCHLORIDE

REACTIONS (1)
  - Injection site pain [Unknown]

NARRATIVE: CASE EVENT DATE: 201703
